FAERS Safety Report 8787803 (Version 1)
Quarter: 2012Q4

REPORT INFORMATION
  Report Type: 
  Country: US (occurrence: US)
  Receive Date: 20120914
  Receipt Date: 20120914
  Transmission Date: 20130627
  Serious: No
  Sender: FDA-Public Use
  Company Number: US-VERTEX PHARMACEUTICAL INC.-AE-2012-005951

PATIENT
  Age: 57 Year
  Sex: Female
  Weight: 59.1 kg

DRUGS (7)
  1. INCIVEK [Suspect]
     Indication: HEPATITIS C
     Route: 048
     Dates: start: 20120330
  2. PEGASYS [Concomitant]
     Indication: HEPATITIS C
     Route: 058
     Dates: start: 20120330
  3. RIBAPAK [Concomitant]
     Indication: HEPATITIS C
     Route: 048
     Dates: start: 20120330, end: 20120517
  4. RIBAPAK [Concomitant]
     Route: 048
     Dates: start: 20120518
  5. CELEXA [Concomitant]
     Route: 048
  6. LEVOTHYROXINE [Concomitant]
     Route: 048
  7. TRAMADOL [Concomitant]
     Indication: PAIN IN EXTREMITY
     Route: 048

REACTIONS (7)
  - Urinary tract infection [Recovered/Resolved]
  - Gastrooesophageal reflux disease [Not Recovered/Not Resolved]
  - Insomnia [Not Recovered/Not Resolved]
  - Fatigue [Not Recovered/Not Resolved]
  - Drug eruption [Unknown]
  - Rash papular [Unknown]
  - Red blood cell count decreased [Not Recovered/Not Resolved]
